FAERS Safety Report 5650303-8 (Version None)
Quarter: 2008Q1

REPORT INFORMATION
  Report Type: 
  Country: None (occurrence: None)
  Receive Date: 20080304
  Receipt Date: 20080304
  Transmission Date: 20080703
  Serious: No
  Sender: FDA-Public Use
  Company Number: None

PATIENT
  Age: 9 Week

DRUGS (1)
  1. SYNAGIS [Suspect]

REACTIONS (2)
  - CYANOSIS [None]
  - PALLOR [None]
